FAERS Safety Report 6424843-8 (Version None)
Quarter: 2009Q4

REPORT INFORMATION
  Report Type: 
  Country: None (occurrence: None)
  Receive Date: 20091103
  Receipt Date: 20091029
  Transmission Date: 20100525
  Serious: Yes (Death, Other)
  Sender: FDA-Public Use
  Company Number: PHEH2009US14732

PATIENT
  Sex: Female

DRUGS (1)
  1. ESTRADERM [Suspect]
     Dosage: UNK
     Route: 062
     Dates: start: 19930408, end: 19961201

REACTIONS (5)
  - ANXIETY [None]
  - BREAST CANCER [None]
  - DEATH [None]
  - INJURY [None]
  - PAIN [None]
